FAERS Safety Report 14659038 (Version 2)
Quarter: 2018Q1

REPORT INFORMATION
  Report Type: Spontaneous
  Country: ES (occurrence: ES)
  Receive Date: 20180320
  Receipt Date: 20180320
  Transmission Date: 20180509
  Serious: No
  Sender: FDA-Public Use
  Company Number: ES-PFIZER INC-2018106594

PATIENT
  Age: 59 Year
  Sex: Male

DRUGS (7)
  1. DOXORUBICIN HCL [Suspect]
     Active Substance: DOXORUBICIN HYDROCHLORIDE
     Indication: PRIMARY EFFUSION LYMPHOMA
     Dosage: UNK, CYCLIC
  2. PREDNISONE. [Suspect]
     Active Substance: PREDNISONE
     Indication: PRIMARY EFFUSION LYMPHOMA
     Dosage: UNK, CYCLIC
  3. EMTRICITABINE [Concomitant]
     Active Substance: EMTRICITABINE
     Indication: HIV INFECTION
     Dosage: UNK
  4. RALTEGRAVIR. [Concomitant]
     Active Substance: RALTEGRAVIR
     Indication: HIV INFECTION
     Dosage: UNK
  5. CYCLOPHOSPHAMIDE. [Suspect]
     Active Substance: CYCLOPHOSPHAMIDE
     Indication: PRIMARY EFFUSION LYMPHOMA
     Dosage: UNK UNK, CYCLIC
  6. TENOFOVIR [Concomitant]
     Active Substance: TENOFOVIR
     Indication: HIV INFECTION
     Dosage: UNK
  7. BORTEZOMIB [Suspect]
     Active Substance: BORTEZOMIB
     Indication: PRIMARY EFFUSION LYMPHOMA
     Dosage: UNK, CYCLIC

REACTIONS (1)
  - Neoplasm progression [Recovered/Resolved]
